FAERS Safety Report 6555635-7 (Version None)
Quarter: 2010Q1

REPORT INFORMATION
  Report Type: 
  Country: None (occurrence: None)
  Receive Date: 20100125
  Receipt Date: 20100108
  Transmission Date: 20100710
  Serious: Yes (Disabling)
  Sender: FDA-Public Use
  Company Number: 09-AUR-10455

PATIENT
  Age: 52 Year
  Weight: 80 kg

DRUGS (5)
  1. SIMVASTATIN [Suspect]
     Indication: DIABETES MELLITUS
     Dosage: 20MG,ORAL
     Route: 048
     Dates: start: 20080320, end: 20090220
  2. ASPIRIN [Concomitant]
  3. HUMALOG [Concomitant]
  4. LANTUS [Concomitant]
  5. VIAGRA [Concomitant]

REACTIONS (3)
  - AMNESIA [None]
  - BLOOD CREATINE PHOSPHOKINASE INCREASED [None]
  - MYALGIA [None]
